FAERS Safety Report 15474442 (Version 1)
Quarter: 2018Q4

REPORT INFORMATION
  Report Type: Spontaneous
  Country: AR (occurrence: AR)
  Receive Date: 20181008
  Receipt Date: 20181008
  Transmission Date: 20190205
  Serious: Yes (Death, Hospitalization, Other)
  Sender: FDA-Public Use
  Company Number: AR-GILEAD-2018-0366156

PATIENT
  Age: 67 Year
  Sex: Male

DRUGS (2)
  1. METFORMIN [Concomitant]
     Active Substance: METFORMIN HYDROCHLORIDE
  2. GENVOYA [Suspect]
     Active Substance: COBICISTAT\ELVITEGRAVIR\EMTRICITABINE\TENOFOVIR ALAFENAMIDE FUMARATE
     Indication: HIV INFECTION
     Dosage: 1 DF, UNK
     Route: 048
     Dates: start: 201804, end: 201810

REACTIONS (6)
  - Hypoglycaemia [Not Recovered/Not Resolved]
  - Hepatotoxicity [Unknown]
  - Haemodynamic instability [Not Recovered/Not Resolved]
  - Death [Fatal]
  - Unevaluable event [Unknown]
  - Sensory disturbance [Not Recovered/Not Resolved]
